FAERS Safety Report 26182011 (Version 1)
Quarter: 2025Q4

REPORT INFORMATION
  Report Type: Spontaneous
  Country: JP (occurrence: JP)
  Receive Date: 20251221
  Receipt Date: 20251221
  Transmission Date: 20260117
  Serious: Yes (Life-Threatening)
  Sender: MERCK SHARP & DOHME LLC
  Company Number: JP-009507513-2361676

PATIENT
  Age: 72 Year
  Sex: Male

DRUGS (7)
  1. KEYTRUDA [Suspect]
     Active Substance: PEMBROLIZUMAB
     Indication: Gallbladder cancer recurrent
     Route: 041
     Dates: start: 20250304, end: 20250415
  2. GEMCITABINE [Concomitant]
     Active Substance: GEMCITABINE
     Route: 041
     Dates: start: 20250304, end: 20250422
  3. CISPLATIN [Concomitant]
     Active Substance: CISPLATIN
     Route: 041
     Dates: start: 20250304, end: 20250422
  4. Primperan Tablet [Concomitant]
     Route: 048
     Dates: start: 20250304
  5. SODIUM FERROUS CITRATE Tablet 50mg [Concomitant]
     Route: 048
     Dates: start: 20250325
  6. Esomeprazole Capsule 20 mg [Concomitant]
     Route: 048
  7. LOXONIN TAPE 100mg [Concomitant]
     Route: 062
     Dates: start: 20250325

REACTIONS (2)
  - Immune-mediated myositis [Not Recovered/Not Resolved]
  - Myocarditis [Not Recovered/Not Resolved]

NARRATIVE: CASE EVENT DATE: 20250527
